FAERS Safety Report 5565129-3 (Version None)
Quarter: 2007Q4

REPORT INFORMATION
  Report Type: 
  Country: None (occurrence: None)
  Receive Date: 20071218
  Receipt Date: 20071217
  Transmission Date: 20080405
  Serious: Yes (Hospitalization)
  Sender: FDA-Public Use
  Company Number: FR-WYE-G00786307

PATIENT
  Sex: Female

DRUGS (8)
  1. EFFEXOR [Suspect]
     Route: 048
     Dates: start: 20020101, end: 20070907
  2. LEXOMIL [Suspect]
     Dosage: UNKNOWN
     Route: 048
     Dates: start: 20020101, end: 20070907
  3. ABUFENE [Suspect]
     Dosage: IF NECESSARY, 400 MG
     Route: 048
     Dates: start: 20050101
  4. BETASERC [Suspect]
     Dosage: UNKNOWN
     Route: 048
     Dates: start: 20070101, end: 20070907
  5. SERMION [Suspect]
     Dosage: IF NECESSARY, DOSE UNKNOWN
     Route: 048
     Dates: start: 20070101
  6. DOLIPRANE [Suspect]
     Dosage: IF NECESSARY, DOSE UNKNOWN
     Route: 048
     Dates: start: 20070101
  7. TAHOR [Suspect]
     Dosage: UNKNOWN
     Route: 048
     Dates: start: 20020101, end: 20070907
  8. AMYLASE [Suspect]
     Dosage: UNKNOWN
     Dates: start: 20020101, end: 20070907

REACTIONS (2)
  - MYELOFIBROSIS [None]
  - PANCYTOPENIA [None]
